FAERS Safety Report 8634684 (Version 4)
Quarter: 2013Q2

REPORT INFORMATION
  Report Type: Spontaneous
  Country: US (occurrence: US)
  Receive Date: 20120626
  Receipt Date: 20130107
  Transmission Date: 20140414
  Serious: Yes (Other)
  Sender: FDA-Public Use
  Company Number: PHEH2012US012433

PATIENT
  Sex: Male

DRUGS (2)
  1. GILENYA (FTY) CAPSULE, 0.5MG [Suspect]
     Indication: MULTIPLE SCLEROSIS
     Dosage: 0.5 MG, QD
     Route: 048
     Dates: start: 20120106
  2. UNSPECIFIED INGREDIENT [Concomitant]

REACTIONS (3)
  - Clumsiness [Unknown]
  - Pain [Unknown]
  - Overdose [Unknown]
